FAERS Safety Report 10144969 (Version 1)
Quarter: 2014Q2

REPORT INFORMATION
  Report Type: Spontaneous
  Country: US (occurrence: US)
  Receive Date: 20140430
  Receipt Date: 20140430
  Transmission Date: 20141212
  Serious: Yes (Hospitalization)
  Sender: FDA-Public Use
  Company Number: US-JNJFOC-20140413158

PATIENT
  Age: 4 Month
  Sex: Male
  Weight: 4.99 kg

DRUGS (7)
  1. CHILDREN^S TYLENOL [Suspect]
     Indication: PAIN
     Route: 048
     Dates: start: 20140224, end: 20140224
  2. CHILDREN^S TYLENOL [Suspect]
     Indication: PROPHYLAXIS
     Route: 048
     Dates: start: 20140224, end: 20140224
  3. PNEUMOCOCCAL CONJUGATE VACCINE [Suspect]
     Indication: IMMUNISATION
     Dosage: ONCE
     Route: 065
     Dates: start: 20140224
  4. HAEMOPHILUS INFLUENZA TYPE B VACCINE [Suspect]
     Indication: IMMUNISATION
     Dosage: ONCE
     Route: 065
     Dates: start: 20140224
  5. DTAP [Suspect]
     Indication: IMMUNISATION
     Dosage: ONCE
     Route: 065
     Dates: start: 20140224
  6. DT IPV VACCINE [Suspect]
     Indication: IMMUNISATION
     Dosage: ONCE
     Route: 065
     Dates: start: 20140224
  7. ZANTAC [Concomitant]
     Indication: PRODUCT USED FOR UNKNOWN INDICATION
     Route: 065

REACTIONS (6)
  - Breath holding [Unknown]
  - Cyanosis [Unknown]
  - Injection site erythema [Unknown]
  - Injection site induration [Unknown]
  - Off label use [Unknown]
  - Drug ineffective [Unknown]
